FAERS Safety Report 10862497 (Version 3)
Quarter: 2015Q2

REPORT INFORMATION
  Report Type: Report from Study
  Country: US (occurrence: US)
  Receive Date: 20150224
  Receipt Date: 20150402
  Transmission Date: 20150821
  Serious: Yes (Hospitalization, Disabling, Other)
  Sender: FDA-Public Use
  Company Number: US-GILEAD-2015-0138557

PATIENT
  Age: 50 Year
  Sex: Female

DRUGS (1)
  1. AMBRISENTAN [Suspect]
     Active Substance: AMBRISENTAN
     Indication: PRODUCT USED FOR UNKNOWN INDICATION
     Dosage: 10 MG, QD
     Route: 065
     Dates: start: 20120430

REACTIONS (15)
  - Fall [Unknown]
  - Joint injury [Unknown]
  - Vomiting [Unknown]
  - Influenza [Unknown]
  - Scleroderma [Unknown]
  - Cardiac failure [Unknown]
  - Body temperature increased [Unknown]
  - Hip fracture [Unknown]
  - Limb injury [Unknown]
  - Dyspnoea [Unknown]
  - General physical health deterioration [Unknown]
  - Malaise [Unknown]
  - Disability [Unknown]
  - Cerebrovascular accident [Unknown]
  - Lung disorder [Unknown]

NARRATIVE: CASE EVENT DATE: 2014
